FAERS Safety Report 11747612 (Version 3)
Quarter: 2015Q4

REPORT INFORMATION
  Report Type: Spontaneous
  Country: US (occurrence: US)
  Receive Date: 20151117
  Receipt Date: 20151118
  Transmission Date: 20160304
  Serious: No
  Sender: FDA-Public Use
  Company Number: US-SHIRE-US201515135

PATIENT
  Age: 37 Year
  Sex: Female

DRUGS (1)
  1. VYVANSE [Suspect]
     Active Substance: LISDEXAMFETAMINE DIMESYLATE
     Indication: BINGE EATING
     Dosage: 50 MG, UNKNOWN
     Route: 048
     Dates: start: 2015

REACTIONS (2)
  - Feeling jittery [Unknown]
  - Chest discomfort [Unknown]

NARRATIVE: CASE EVENT DATE: 2015
